FAERS Safety Report 24407706 (Version 8)
Quarter: 2025Q3

REPORT INFORMATION
  Report Type: Spontaneous
  Country: JP (occurrence: JP)
  Receive Date: 20241007
  Receipt Date: 20250912
  Transmission Date: 20251021
  Serious: Yes (Hospitalization, Disabling, Other)
  Sender: GLAXOSMITHKLINE
  Company Number: JP-GSK-JP2024JPN121053

PATIENT
  Age: 70 Year
  Sex: Male
  Weight: 67 kg

DRUGS (8)
  1. DAPRODUSTAT [Suspect]
     Active Substance: DAPRODUSTAT
     Indication: Nephrogenic anaemia
  2. MIRCERA [Concomitant]
     Active Substance: METHOXY POLYETHYLENE GLYCOL-EPOETIN BETA
     Indication: Nephrogenic anaemia
  3. ENTRESTO [Concomitant]
     Active Substance: SACUBITRIL\VALSARTAN
     Indication: Hypertension
     Dosage: 200 MG, 1D
  4. ROSUVASTATIN [Concomitant]
     Active Substance: ROSUVASTATIN
     Indication: Dyslipidaemia
     Dosage: 2.5 MG, 1D
  5. ALFACALCIDOL [Concomitant]
     Active Substance: ALFACALCIDOL
     Indication: Hypocalcaemia
     Dosage: 0.25 ?G, 1D
  6. LANSOPRAZOLE [Concomitant]
     Active Substance: LANSOPRAZOLE
     Indication: Gastrooesophageal reflux disease
     Dosage: 15 MG, 1D
  7. PANTETHINE [Concomitant]
     Active Substance: PANTETHINE
     Indication: Constipation
     Dosage: 100 MG, TID
  8. ATARAX [Concomitant]
     Active Substance: HYDROXYZINE HYDROCHLORIDE
     Indication: Pruritus
     Dosage: 10 MG, 1D

REACTIONS (17)
  - Cardiac failure [Recovering/Resolving]
  - Viral cardiomyopathy [Recovering/Resolving]
  - Hypothyroidism [Recovering/Resolving]
  - Coronary artery occlusion [Unknown]
  - Embolism arterial [Recovering/Resolving]
  - Cerebral artery embolism [Recovering/Resolving]
  - COVID-19 pneumonia [Recovered/Resolved]
  - Myocardial ischaemia [Not Recovered/Not Resolved]
  - Pneumonia bacterial [Unknown]
  - Viral myocarditis [Unknown]
  - Paresis [Recovering/Resolving]
  - Haemoglobin increased [Recovering/Resolving]
  - Decreased appetite [Unknown]
  - Myalgia [Unknown]
  - Silent thyroiditis [Unknown]
  - Hyperphosphataemia [Unknown]
  - Device related infection [Unknown]

NARRATIVE: CASE EVENT DATE: 20240401
